FAERS Safety Report 16887265 (Version 1)
Quarter: 2019Q4

REPORT INFORMATION
  Report Type: Other
  Country: RU (occurrence: RU)
  Receive Date: 20191004
  Receipt Date: 20191004
  Transmission Date: 20200122
  Serious: Yes (Hospitalization, Other)
  Sender: FDA-Public Use
  Company Number: RU-TOPROL ACQUISITION LLC-2019-TOP-001215

PATIENT
  Age: 89 Year
  Sex: Female
  Weight: 86 kg

DRUGS (3)
  1. METOPROLOL SUCCINATE. [Suspect]
     Active Substance: METOPROLOL SUCCINATE
     Indication: LEFT VENTRICULAR DYSFUNCTION
  2. METOPROLOL SUCCINATE. [Suspect]
     Active Substance: METOPROLOL SUCCINATE
     Indication: CARDIAC FAILURE CHRONIC
  3. METOPROLOL SUCCINATE. [Suspect]
     Active Substance: METOPROLOL SUCCINATE
     Indication: HYPERTENSION
     Dosage: 25 MG DAILY
     Route: 048
     Dates: start: 20190402, end: 20190413

REACTIONS (1)
  - Sinoatrial block [Recovered/Resolved]

NARRATIVE: CASE EVENT DATE: 20190412
